FAERS Safety Report 6454694-X (Version None)
Quarter: 2009Q4

REPORT INFORMATION
  Report Type: 
  Country: None (occurrence: None)
  Receive Date: 20091124
  Receipt Date: 20091113
  Transmission Date: 20100525
  Serious: Yes (Hospitalization)
  Sender: FDA-Public Use
  Company Number: US-ELI_LILLY_AND_COMPANY-US200911003772

PATIENT
  Sex: Female
  Weight: 61.2 kg

DRUGS (16)
  1. PEMETREXED [Suspect]
     Indication: NON-SMALL CELL LUNG CANCER
     Dosage: 500 MG/M2, OTHER
     Route: 042
     Dates: start: 20091014
  2. CARBOPLATIN [Suspect]
     Indication: NON-SMALL CELL LUNG CANCER
     Dosage: 6 D/F, OTHER
     Route: 050
     Dates: start: 20091014
  3. BEVACIZUMAB [Suspect]
     Indication: NON-SMALL CELL LUNG CANCER
     Dosage: 15 MG/KG, UNK
     Dates: start: 20091014
  4. TYLENOL                                 /SCH/ [Concomitant]
     Indication: PREMEDICATION
  5. MAALOX [Concomitant]
  6. BENADRYL [Concomitant]
  7. LEXAPRO [Concomitant]
  8. FOLIC ACID [Concomitant]
     Indication: SUPPLEMENTATION THERAPY
  9. ATIVAN [Concomitant]
  10. MAGNESIUM SULFATE [Concomitant]
  11. ZOFRAN [Concomitant]
  12. ROXICODONE [Concomitant]
     Indication: PAIN
  13. POTASSIUM CHLORIDE [Concomitant]
  14. COMPAZINE [Concomitant]
     Indication: NAUSEA
  15. SENOKOT [Concomitant]
     Indication: CONSTIPATION
  16. AMBIEN [Concomitant]

REACTIONS (1)
  - GASTRITIS [None]
